FAERS Safety Report 7565261-9 (Version None)
Quarter: 2011Q2

REPORT INFORMATION
  Report Type: 
  Country: None (occurrence: None)
  Receive Date: 20110622
  Receipt Date: 20100816
  Transmission Date: 20111010
  Serious: Yes (Death, Other)
  Sender: FDA-Public Use
  Company Number: US-MYLANLABS-2010S1012419

PATIENT
  Age: 57 Year
  Sex: Female
  Weight: 79.83 kg

DRUGS (40)
  1. FENTANYL [Concomitant]
     Route: 062
  2. PROTONIX [Concomitant]
     Route: 048
  3. TOPIRAMATE [Concomitant]
     Route: 048
  4. TYLENOL-500 [Concomitant]
  5. UNASYN [Concomitant]
     Route: 042
  6. HEPARIN [Concomitant]
     Route: 058
  7. MAGNESIUM SULFATE [Concomitant]
     Route: 042
  8. POTASSIUM CHLORIDE [Concomitant]
     Route: 042
  9. CHLORDIAZEPOXIDE [Concomitant]
  10. HALDOL [Concomitant]
     Route: 042
  11. INSULIN [Concomitant]
  12. NOREPINEPHRINE BITARTRATE [Concomitant]
  13. LINEZOLID [Concomitant]
     Route: 042
  14. ZOSYN [Concomitant]
     Route: 042
  15. SCOPOLAMINE [Concomitant]
     Route: 062
  16. CLOZAPINE [Suspect]
     Indication: SCHIZOPHRENIA
     Route: 048
     Dates: start: 20100601, end: 20100603
  17. CHLORHEXIDINE GLUCONATE [Concomitant]
     Route: 048
  18. NOVOLOG [Concomitant]
  19. VANCOMYCIN [Concomitant]
     Route: 042
  20. XIGRIS [Concomitant]
  21. MORPHINE [Concomitant]
     Route: 042
  22. LEVOTHYROXINE SODIUM [Concomitant]
     Route: 048
  23. MIDAZOLAM HCL [Concomitant]
     Route: 042
  24. BUDESONIDE [Concomitant]
     Route: 055
  25. DIVALPROEX SODIUM [Concomitant]
     Route: 048
  26. SODIUM BICARBONATE [Concomitant]
     Route: 042
  27. ZIPRASIDONE HYDROCHLORIDE [Concomitant]
     Route: 048
  28. GLYCOPYRROLATE [Concomitant]
     Route: 042
  29. PRECEDEX [Concomitant]
  30. ALBUMIN (HUMAN) [Concomitant]
  31. COMBIVENT [Concomitant]
     Route: 055
  32. DUONEB [Concomitant]
  33. CALCIUM GLUCONATE [Concomitant]
     Route: 042
  34. CIPROFLOXACIN HCL [Concomitant]
     Route: 042
  35. ERYTHROMYCIN [Concomitant]
     Route: 042
  36. ATIVAN [Concomitant]
     Route: 048
  37. CLOZAPINE [Suspect]
     Route: 048
     Dates: start: 20100608, end: 20100612
  38. LOVENOX [Concomitant]
     Route: 058
  39. HETASTARCH 6% IN 0.9% SODIUM CHLORIDE IN PLASTIC CONTAINER [Concomitant]
  40. ZOFRAN [Concomitant]

REACTIONS (1)
  - DEATH [None]
